FAERS Safety Report 10267542 (Version 1)
Quarter: 2014Q2

REPORT INFORMATION
  Report Type: Spontaneous
  Country: US (occurrence: None)
  Receive Date: 20140626
  Receipt Date: 20140626
  Transmission Date: 20141212
  Serious: No
  Sender: FDA-Public Use
  Company Number: None

PATIENT
  Age: 69 Year
  Sex: Male
  Weight: 76.3 kg

DRUGS (1)
  1. PACLITAXEL [Suspect]
     Indication: ADENOSQUAMOUS CELL LUNG CANCER STAGE IV
     Route: 042
     Dates: start: 20140619, end: 20140619

REACTIONS (8)
  - Pain in extremity [None]
  - Hypoaesthesia [None]
  - Flushing [None]
  - Feeling hot [None]
  - Blood pressure decreased [None]
  - Heart rate increased [None]
  - Oxygen saturation decreased [None]
  - Chest discomfort [None]
